FAERS Safety Report 18419764 (Version 1)
Quarter: 2020Q4

REPORT INFORMATION
  Report Type: Other
  Country: US (occurrence: US)
  Receive Date: 20201023
  Receipt Date: 20201023
  Transmission Date: 20210114
  Serious: Yes (Other)
  Sender: FDA-Public Use
  Company Number: US-ROCHE-2696398

PATIENT
  Sex: Female
  Weight: 68.1 kg

DRUGS (9)
  1. XOLAIR [Suspect]
     Active Substance: OMALIZUMAB
     Indication: ASTHMA
     Route: 065
     Dates: start: 20201005
  2. XOLAIR [Suspect]
     Active Substance: OMALIZUMAB
  3. FEXOFENADINE HCL [Concomitant]
     Active Substance: FEXOFENADINE HYDROCHLORIDE
     Route: 048
  4. XOLAIR [Suspect]
     Active Substance: OMALIZUMAB
     Indication: IDIOPATHIC URTICARIA
     Route: 065
     Dates: start: 201906
  5. XOLAIR [Suspect]
     Active Substance: OMALIZUMAB
  6. XOLAIR [Suspect]
     Active Substance: OMALIZUMAB
  7. PROAIR HFA [Concomitant]
     Active Substance: ALBUTEROL SULFATE
     Indication: ASTHMA
     Dosage: 108(90 BASE)MCG/ACT , 2 PUFFS AS NEEDED EVERY 4 HRS, 30 DAYS
  8. EPIPEN [Concomitant]
     Active Substance: EPINEPHRINE
     Indication: ANAPHYLACTIC REACTION
     Dosage: DEVICE 2 PACK INJECTION ONCE AS NEEDED IN CASE OF ANAPHYLASIX 0.3 MG/0.3ML
  9. XOLAIR [Suspect]
     Active Substance: OMALIZUMAB

REACTIONS (4)
  - Angioedema [Unknown]
  - Urticaria [Unknown]
  - Dyspnoea [Unknown]
  - Swelling face [Unknown]
